FAERS Safety Report 5510168-1 (Version None)
Quarter: 2007Q4

REPORT INFORMATION
  Report Type: 
  Country: None (occurrence: None)
  Receive Date: 20071108
  Receipt Date: 20070417
  Transmission Date: 20080405
  Serious: Yes (Other)
  Sender: FDA-Public Use
  Company Number: US-ASTRAZENECA-2007UW07579

PATIENT
  Sex: Male

DRUGS (1)
  1. PRILOSEC OTC [Suspect]

REACTIONS (1)
  - HAEMOLYTIC ANAEMIA [None]
